FAERS Safety Report 6492804-9 (Version None)
Quarter: 2009Q4

REPORT INFORMATION
  Report Type: 
  Country: None (occurrence: None)
  Receive Date: 20091209
  Receipt Date: 20091124
  Transmission Date: 20100525
  Serious: Yes (Hospitalization)
  Sender: FDA-Public Use
  Company Number: CIO09021037

PATIENT
  Age: 57 Year
  Sex: 0

DRUGS (15)
  1. SINEX VAPOSPRAY 12 HOUR DECONGESTANT ULTRA FINE MIST(CAMPHOR, EUCALYPT [Suspect]
     Dosage: INTRANASAL
  2. AMITRIPTYLINE HYDROCHLORIDE [Concomitant]
  3. GLIPIZIDE [Concomitant]
  4. RENAGEL [Concomitant]
  5. PLAVIX [Concomitant]
  6. COREG [Concomitant]
  7. FUROSEMIDE [Concomitant]
  8. LIPITOR [Concomitant]
  9. METOPROLOL (METOPROLOL) [Concomitant]
  10. METOLAZONE [Concomitant]
  11. REGLAN /00041901/ (METOCLOPRAMIDE) [Concomitant]
  12. SENSIPAR [Concomitant]
  13. PROTONIX [Concomitant]
  14. INSULIN LANTUS (INSULIN GLARGINE) [Concomitant]
  15. BREATHING TREATMENTS [Concomitant]

REACTIONS (6)
  - CHEST PAIN [None]
  - DYSPHAGIA [None]
  - DYSPNOEA [None]
  - OROPHARYNGEAL PAIN [None]
  - OVERGROWTH BACTERIAL [None]
  - THROAT IRRITATION [None]
